FAERS Safety Report 8932699 (Version 1)
Quarter: 2012Q4

REPORT INFORMATION
  Report Type: 
  Country: US (occurrence: US)
  Receive Date: 20121129
  Receipt Date: 20121129
  Transmission Date: 20130627
  Serious: Yes (Other)
  Sender: FDA-Public Use
  Company Number: US-ELI_LILLY_AND_COMPANY-US201211006674

PATIENT
  Age: 30 Year
  Sex: Female

DRUGS (1)
  1. ZYPREXA RELPREVV [Suspect]
     Dosage: 300 mg, 2/M
     Dates: start: 20120920, end: 20121101

REACTIONS (2)
  - Injection site abscess [Not Recovered/Not Resolved]
  - Injection site mass [Not Recovered/Not Resolved]
